FAERS Safety Report 24759835 (Version 2)
Quarter: 2025Q3

REPORT INFORMATION
  Report Type: Spontaneous
  Country: US (occurrence: US)
  Receive Date: 20241220
  Receipt Date: 20250810
  Transmission Date: 20251020
  Serious: Yes (Other)
  Sender: ALEXION PHARMACEUTICALS
  Company Number: US-AstraZeneca-CH-00771773A

PATIENT
  Age: 67 Year
  Sex: Male

DRUGS (1)
  1. TAGRISSO [Suspect]
     Active Substance: OSIMERTINIB
     Indication: Metastases to lung
     Dosage: UNK UNK, QD
     Dates: start: 20241201, end: 20241214

REACTIONS (3)
  - Interstitial lung disease [Recovering/Resolving]
  - Bronchospasm [Recovering/Resolving]
  - Cough [Recovering/Resolving]

NARRATIVE: CASE EVENT DATE: 20241210
